FAERS Safety Report 10570646 (Version 1)
Quarter: 2014Q4

REPORT INFORMATION
  Report Type: Spontaneous
  Country: US (occurrence: US)
  Receive Date: 20141107
  Receipt Date: 20141107
  Transmission Date: 20150529
  Serious: Yes (Hospitalization)
  Sender: FDA-Public Use
  Company Number: US-JNJFOC-20141021102

PATIENT
  Age: 80 Year
  Sex: Female

DRUGS (2)
  1. XARELTO [Suspect]
     Active Substance: RIVAROXABAN
     Indication: ATRIAL FIBRILLATION
     Route: 048
  2. XARELTO [Suspect]
     Active Substance: RIVAROXABAN
     Indication: CEREBROVASCULAR ACCIDENT PROPHYLAXIS
     Route: 048

REACTIONS (9)
  - Antithrombin III decreased [Unknown]
  - Hypotension [Unknown]
  - Rhabdomyolysis [Unknown]
  - Blood potassium increased [Unknown]
  - Rhythm idioventricular [Unknown]
  - Thrombosis [Unknown]
  - Leg amputation [Unknown]
  - Blood creatine increased [Unknown]
  - Eye operation [Unknown]

NARRATIVE: CASE EVENT DATE: 2014
